FAERS Safety Report 7637132-0 (Version None)
Quarter: 2011Q3

REPORT INFORMATION
  Report Type: 
  Country: None (occurrence: None)
  Receive Date: 20110726
  Receipt Date: 20110720
  Transmission Date: 20111222
  Serious: Yes (Disabling)
  Sender: FDA-Public Use
  Company Number: FR-BAXTER-2010BH012942

PATIENT
  Age: 15 Year
  Sex: Male

DRUGS (20)
  1. BACTRIM [Concomitant]
     Indication: PRODUCT USED FOR UNKNOWN INDICATION
     Route: 065
  2. MABTHERA [Suspect]
     Indication: HODGKIN'S DISEASE
     Route: 042
     Dates: start: 20091223, end: 20091223
  3. VINCRISTINE SULFATE [Suspect]
     Route: 042
     Dates: start: 20100215, end: 20100215
  4. ACETAMINOPHEN [Concomitant]
     Indication: PRODUCT USED FOR UNKNOWN INDICATION
     Route: 065
  5. LEXOMIL [Concomitant]
     Indication: PRODUCT USED FOR UNKNOWN INDICATION
     Route: 065
  6. ETOPOSIDE [Suspect]
     Route: 042
     Dates: start: 20100114, end: 20100117
  7. FASTURTEC [Concomitant]
     Indication: PRODUCT USED FOR UNKNOWN INDICATION
     Route: 065
  8. LASIX [Concomitant]
     Indication: PRODUCT USED FOR UNKNOWN INDICATION
     Route: 065
  9. VINCRISTINE SULFATE [Suspect]
     Route: 042
     Dates: start: 20100301, end: 20100301
  10. HYDROXYZINE HCL [Concomitant]
     Indication: PRODUCT USED FOR UNKNOWN INDICATION
     Route: 065
  11. VINCRISTINE SULFATE [Suspect]
     Indication: HODGKIN'S DISEASE
     Route: 042
     Dates: start: 20100120, end: 20100128
  12. PREDNISOLONE [Suspect]
     Indication: HODGKIN'S DISEASE
     Route: 042
     Dates: start: 20091223, end: 20091223
  13. LOVENOX [Concomitant]
     Indication: PRODUCT USED FOR UNKNOWN INDICATION
     Route: 065
  14. VINCRISTINE SULFATE [Suspect]
     Route: 042
     Dates: start: 20091223, end: 20091223
  15. ETOPOSIDE [Suspect]
     Route: 042
     Dates: start: 20100217, end: 20100219
  16. DOXORUBICIN HCL [Suspect]
     Indication: HODGKIN'S DISEASE
     Route: 042
     Dates: start: 20100301, end: 20100301
  17. CYCLOPHOSPHAMIDE [Suspect]
     Indication: HODGKIN'S DISEASE
     Route: 042
     Dates: start: 20091223, end: 20091223
  18. ETOPOSIDE [Suspect]
     Indication: HODGKIN'S DISEASE
     Route: 042
     Dates: start: 20100215, end: 20100215
  19. DOXORUBICIN HCL [Suspect]
     Route: 042
     Dates: start: 20100215, end: 20100215
  20. VINCRISTINE SULFATE [Suspect]
     Route: 042
     Dates: start: 20100222, end: 20100222

REACTIONS (5)
  - DISORIENTATION [None]
  - DYSARTHRIA [None]
  - MEMORY IMPAIRMENT [None]
  - TREMOR [None]
  - NERVOUS SYSTEM DISORDER [None]
